FAERS Safety Report 24404782 (Version 1)
Quarter: 2024Q4

REPORT INFORMATION
  Report Type: Spontaneous
  Country: CN (occurrence: CN)
  Receive Date: 20241007
  Receipt Date: 20241007
  Transmission Date: 20250115
  Serious: Yes (Other)
  Sender: ROCHE
  Company Number: CN-ROCHE-10000094181

PATIENT
  Age: 41 Year
  Sex: Female

DRUGS (3)
  1. ATEZOLIZUMAB [Suspect]
     Active Substance: ATEZOLIZUMAB
     Indication: Undifferentiated nasopharyngeal carcinoma
     Route: 042
     Dates: start: 20240726, end: 20240726
  2. GEMCITABINE HYDROCHLORIDE [Suspect]
     Active Substance: GEMCITABINE HYDROCHLORIDE
     Indication: Undifferentiated nasopharyngeal carcinoma
     Route: 042
     Dates: start: 20240726, end: 20240726
  3. CARBOPLATIN [Suspect]
     Active Substance: CARBOPLATIN
     Indication: Undifferentiated nasopharyngeal carcinoma
     Route: 042
     Dates: start: 20240726, end: 20240726

REACTIONS (1)
  - Myelosuppression [Recovering/Resolving]

NARRATIVE: CASE EVENT DATE: 20240730
